FAERS Safety Report 13412690 (Version 4)
Quarter: 2024Q1

REPORT INFORMATION
  Report Type: Spontaneous
  Country: US (occurrence: US)
  Receive Date: 20170406
  Receipt Date: 20240207
  Transmission Date: 20240410
  Serious: Yes (Other)
  Sender: FDA-Public Use
  Company Number: US-JNJFOC-20170310185

PATIENT
  Age: 12 Year
  Sex: Male

DRUGS (12)
  1. RISPERDAL [Suspect]
     Active Substance: RISPERIDONE
     Indication: Attention deficit hyperactivity disorder
     Route: 048
     Dates: end: 1997
  2. RISPERDAL [Suspect]
     Active Substance: RISPERIDONE
     Indication: Anxiety disorder
     Dosage: 13/APR/2000-THERAPY START DATE
     Route: 048
     Dates: end: 20001203
  3. RISPERDAL [Suspect]
     Active Substance: RISPERIDONE
     Indication: Depression
     Dosage: 14/APR/2014- THERAPY START DATE
     Route: 048
     Dates: end: 20140930
  4. INVEGA [Suspect]
     Active Substance: PALIPERIDONE
     Indication: Attention deficit hyperactivity disorder
     Dosage: 14/APR/2014- THERAPY START DATE
     Route: 048
     Dates: end: 20140809
  5. INVEGA [Suspect]
     Active Substance: PALIPERIDONE
     Indication: Anxiety disorder
     Dosage: 02/SEP/2014-THERAPY START DATE
     Route: 048
     Dates: end: 20140930
  6. INVEGA [Suspect]
     Active Substance: PALIPERIDONE
     Indication: Depression
  7. SEROQUEL [Suspect]
     Active Substance: QUETIAPINE FUMARATE
     Indication: Product used for unknown indication
     Dosage: //2001-THERAPY START DATE
     Route: 065
  8. SEROQUEL [Suspect]
     Active Substance: QUETIAPINE FUMARATE
     Dosage: //2001-THERAPY START DATE
     Route: 065
  9. SEROQUEL [Suspect]
     Active Substance: QUETIAPINE FUMARATE
     Dosage: //2013-THERAPY START DATE
     Route: 065
  10. SEROQUEL [Suspect]
     Active Substance: QUETIAPINE FUMARATE
     Dosage: //2014- THERAPY START DATE
     Route: 065
  11. ZYPREXA [Suspect]
     Active Substance: OLANZAPINE
     Indication: Product used for unknown indication
     Dosage: //2001-THERAPY START DATE
     Route: 065
  12. ZYPREXA [Suspect]
     Active Substance: OLANZAPINE
     Dosage: //2003-THERAPY START DATE
     Route: 065

REACTIONS (4)
  - Gynaecomastia [Not Recovered/Not Resolved]
  - Emotional distress [Unknown]
  - Product use in unapproved indication [Unknown]
  - Off label use [Unknown]

NARRATIVE: CASE EVENT DATE: 19970101
